FAERS Safety Report 13502830 (Version 1)
Quarter: 2017Q2

REPORT INFORMATION
  Report Type: Spontaneous
  Country: US (occurrence: US)
  Receive Date: 20170501
  Receipt Date: 20170501
  Transmission Date: 20170830
  Serious: Yes (Other)
  Sender: FDA-Public Use
  Company Number: None

PATIENT
  Age: 63 Year
  Sex: Female
  Weight: 62.65 kg

DRUGS (1)
  1. FLUOXETINE [Suspect]
     Active Substance: FLUOXETINE HYDROCHLORIDE
     Indication: MAJOR DEPRESSION
     Dosage: FREQUENCY - QAM
     Route: 048
     Dates: start: 20170125, end: 20170419

REACTIONS (4)
  - Drug ineffective [None]
  - Depression [None]
  - Anxiety [None]
  - Product substitution issue [None]

NARRATIVE: CASE EVENT DATE: 20170125
